FAERS Safety Report 9922478 (Version 2)
Quarter: 2014Q1

REPORT INFORMATION
  Report Type: Spontaneous
  Country: US (occurrence: US)
  Receive Date: 20140225
  Receipt Date: 20140225
  Transmission Date: 20141002
  Serious: No
  Sender: FDA-Public Use
  Company Number: US-MYLANLABS-2013S1029014

PATIENT
  Age: 45 Year
  Sex: Female

DRUGS (5)
  1. ATENOLOL TABLETS, USP [Suspect]
     Indication: HEART RATE IRREGULAR
     Route: 048
     Dates: end: 201312
  2. ATENOLOL TABLETS, USP [Suspect]
     Indication: OFF LABEL USE
     Route: 048
     Dates: end: 201312
  3. ATENOLOL TABLETS, USP [Suspect]
     Indication: HEART RATE IRREGULAR
     Route: 048
     Dates: start: 201312, end: 201312
  4. ATENOLOL TABLETS, USP [Suspect]
     Indication: HEART RATE IRREGULAR
     Route: 048
     Dates: start: 201312
  5. BABY ASPIRIN [Concomitant]
     Route: 048

REACTIONS (3)
  - Drug ineffective for unapproved indication [Recovering/Resolving]
  - Heart rate irregular [Recovering/Resolving]
  - Palpitations [Recovering/Resolving]
